FAERS Safety Report 8216644-5 (Version None)
Quarter: 2012Q1

REPORT INFORMATION
  Report Type: 
  Country: None (occurrence: None)
  Receive Date: 20120316
  Receipt Date: 20120306
  Transmission Date: 20120608
  Serious: Yes (Other)
  Sender: FDA-Public Use
  Company Number: JP-VERTEX PHARMACEUTICALS INC.-AE-2012-003433

PATIENT
  Age: 65 Year
  Sex: Female

DRUGS (10)
  1. RIBAVIRIN [Concomitant]
     Route: 048
     Dates: start: 20120207
  2. TELAVIC (TELAPREVIR) [Suspect]
     Indication: HEPATITIS C
     Route: 048
     Dates: start: 20120117, end: 20120213
  3. PEGINTERFERON ALFA-2B [Concomitant]
     Indication: HEPATITIS C
     Route: 051
     Dates: start: 20120117
  4. TELAVIC (TELAPREVIR) [Suspect]
     Route: 048
     Dates: start: 20120214
  5. DOMPERIDONE [Concomitant]
     Route: 048
     Dates: start: 20120117
  6. LEVOTHYROXINE SODIUM [Concomitant]
     Route: 048
  7. ALLOPURINOL [Concomitant]
     Route: 048
  8. CANDESARTAN CILEXETIL [Concomitant]
     Route: 048
     Dates: end: 20120213
  9. RIBAVIRIN [Concomitant]
     Indication: HEPATITIS C
     Route: 048
     Dates: start: 20120117, end: 20120206
  10. LOXOPROFEN [Concomitant]
     Route: 048
     Dates: start: 20120117

REACTIONS (8)
  - HYPERURICAEMIA [None]
  - PAPULE [None]
  - ERYTHEMA [None]
  - HYPOTHYROIDISM [None]
  - BLOOD CREATININE INCREASED [None]
  - HYPOKALAEMIA [None]
  - NAUSEA [None]
  - OEDEMA [None]
